FAERS Safety Report 9629928 (Version 1)
Quarter: 2013Q4

REPORT INFORMATION
  Report Type: Spontaneous
  Country: US (occurrence: US)
  Receive Date: 20131017
  Receipt Date: 20131017
  Transmission Date: 20140711
  Serious: Yes (Other)
  Sender: FDA-Public Use
  Company Number: US-MALLINCKRODT-T201304560

PATIENT
  Age: 54 Year
  Sex: Female

DRUGS (13)
  1. GABLOFEN [Suspect]
     Indication: MUSCLE SPASTICITY
     Dosage: 60
     Route: 037
     Dates: start: 20110611, end: 201108
  2. GABLOFEN [Suspect]
     Dosage: 75
     Route: 037
     Dates: start: 201108, end: 201109
  3. GABLOFEN [Suspect]
     Dosage: 60
     Route: 037
     Dates: start: 201109, end: 201203
  4. GABLOFEN [Suspect]
     Dosage: 75
     Route: 037
     Dates: start: 201203, end: 201208
  5. GABLOFEN [Suspect]
     Dosage: 90
     Route: 037
     Dates: start: 201203, end: 201208
  6. GABLOFEN [Suspect]
     Dosage: 140 MCG/DAY
     Route: 037
  7. GABLOFEN [Suspect]
     Dosage: 184.6 MCG/DAY
     Route: 037
     Dates: end: 201309
  8. GABLOFEN [Suspect]
     Dosage: 75 MCG/DAY
     Route: 037
     Dates: start: 20130912
  9. NUVIGIL [Concomitant]
     Indication: PRODUCT USED FOR UNKNOWN INDICATION
  10. AMPYRA [Concomitant]
     Indication: PRODUCT USED FOR UNKNOWN INDICATION
  11. VESICARE [Concomitant]
     Indication: PRODUCT USED FOR UNKNOWN INDICATION
  12. ESCITALOPRAM [Concomitant]
     Indication: PRODUCT USED FOR UNKNOWN INDICATION
  13. VITAMINS /90003601/ [Concomitant]
     Indication: PRODUCT USED FOR UNKNOWN INDICATION

REACTIONS (13)
  - Abasia [Unknown]
  - Dysstasia [Unknown]
  - Sensation of heaviness [Unknown]
  - Urinary incontinence [Unknown]
  - Faecal incontinence [Unknown]
  - Muscle spasticity [Unknown]
  - Insomnia [Unknown]
  - Asthenia [Unknown]
  - Dizziness [Unknown]
  - Therapeutic response increased [Unknown]
  - Drug effect decreased [Recovered/Resolved]
  - Device damage [Unknown]
  - Device dislocation [Recovered/Resolved]
